FAERS Safety Report 7386195-9 (Version None)
Quarter: 2011Q1

REPORT INFORMATION
  Report Type: 
  Country: None (occurrence: None)
  Receive Date: 20110329
  Receipt Date: 20110329
  Transmission Date: 20110831
  Serious: Yes (Hospitalization, Other)
  Sender: FDA-Public Use
  Company Number: None

PATIENT
  Age: 47 Year
  Sex: Female
  Weight: 68.0396 kg

DRUGS (2)
  1. CYMBALTA [Suspect]
     Indication: FIBROMYALGIA
     Dosage: 20 MG 2/DAY PO
     Route: 048
     Dates: start: 20091007, end: 20091202
  2. CIPROFLOXACIN 500 MG WEST [Suspect]
     Indication: DIARRHOEA
     Dosage: 500 MG 1/DAY PO
     Route: 048
     Dates: start: 20091127, end: 20091130

REACTIONS (66)
  - DIARRHOEA [None]
  - DRUG ADMINISTRATION ERROR [None]
  - ASTHENIA [None]
  - PRURITUS GENERALISED [None]
  - EYE IRRITATION [None]
  - BURNING SENSATION [None]
  - RAYNAUD'S PHENOMENON [None]
  - DISORIENTATION [None]
  - CONFUSIONAL STATE [None]
  - PALPITATIONS [None]
  - DEPRESSION [None]
  - APHASIA [None]
  - FATIGUE [None]
  - CONTUSION [None]
  - DRY EYE [None]
  - INSOMNIA [None]
  - BOWEL MOVEMENT IRREGULARITY [None]
  - FRUSTRATION [None]
  - ORGASM ABNORMAL [None]
  - PARANOIA [None]
  - SEXUAL DYSFUNCTION [None]
  - MIGRAINE [None]
  - DIZZINESS [None]
  - NERVOUS SYSTEM DISORDER [None]
  - PAROSMIA [None]
  - ALOPECIA [None]
  - COGNITIVE DISORDER [None]
  - FOOD INTOLERANCE [None]
  - SPEECH DISORDER [None]
  - LIBIDO DECREASED [None]
  - DRUG DISPENSING ERROR [None]
  - NAUSEA [None]
  - CHILLS [None]
  - FEELING OF BODY TEMPERATURE CHANGE [None]
  - PALLOR [None]
  - AGITATION [None]
  - PAIN IN EXTREMITY [None]
  - HYPERAESTHESIA [None]
  - PARADOXICAL DRUG REACTION [None]
  - DRUG PRESCRIBING ERROR [None]
  - DECREASED APPETITE [None]
  - INCREASED APPETITE [None]
  - ABDOMINAL PAIN [None]
  - METAMORPHOPSIA [None]
  - DRY SKIN [None]
  - MOUTH ULCERATION [None]
  - MANIA [None]
  - IRRITABILITY [None]
  - EMOTIONAL DISORDER [None]
  - BACK PAIN [None]
  - WEIGHT DECREASED [None]
  - STOMATITIS [None]
  - NIGHT SWEATS [None]
  - ANGER [None]
  - RHINORRHOEA [None]
  - MUSCULOSKELETAL CHEST PAIN [None]
  - MUSCLE SPASMS [None]
  - THOUGHT BLOCKING [None]
  - DYSGRAPHIA [None]
  - ERYTHEMA [None]
  - UNEVALUABLE EVENT [None]
  - SKIN IRRITATION [None]
  - MEMORY IMPAIRMENT [None]
  - HYPERACUSIS [None]
  - DISTURBANCE IN ATTENTION [None]
  - DYSLEXIA [None]
